FAERS Safety Report 8911083 (Version 2)
Quarter: 2016Q1

REPORT INFORMATION
  Report Type: Spontaneous
  Country: BE (occurrence: BE)
  Receive Date: 20121116
  Receipt Date: 20160308
  Transmission Date: 20160526
  Serious: Yes (Death, Life-Threatening, Other)
  Sender: FDA-Public Use
  Company Number: BE-BRISTOL-MYERS SQUIBB COMPANY-17136730

PATIENT
  Sex: Female

DRUGS (4)
  1. BRIPLATIN [Suspect]
     Active Substance: CISPLATIN
     Indication: GESTATIONAL TROPHOBLASTIC TUMOUR
     Dosage: DAY 1
     Route: 042
  2. DACTINOMYCIN [Suspect]
     Active Substance: DACTINOMYCIN
     Indication: GESTATIONAL TROPHOBLASTIC TUMOUR
     Dosage: 8 DAY AND EVERY 14 DAY.
     Route: 042
  3. VEPESID [Suspect]
     Active Substance: ETOPOSIDE
     Indication: GESTATIONAL TROPHOBLASTIC TUMOUR
     Dosage: 100MG/M2 ON DAY 8
     Route: 065
  4. METHOTREXATE [Suspect]
     Active Substance: METHOTREXATE
     Indication: GESTATIONAL TROPHOBLASTIC TUMOUR
     Dosage: 300 MG/M2, UNK
     Route: 065

REACTIONS (7)
  - Diabetic hyperosmolar coma [Unknown]
  - Ototoxicity [Unknown]
  - Endocarditis [Fatal]
  - Pancytopenia [Unknown]
  - Neutropenic sepsis [Fatal]
  - Septic embolus [Fatal]
  - Product use issue [Unknown]
